FAERS Safety Report 6907886-7 (Version None)
Quarter: 2010Q3

REPORT INFORMATION
  Report Type: 
  Country: None (occurrence: None)
  Receive Date: 20100805
  Receipt Date: 20100722
  Transmission Date: 20110219
  Serious: Yes (Other)
  Sender: FDA-Public Use
  Company Number: PHHY2010BR48342

PATIENT
  Age: 84 Year
  Sex: Female

DRUGS (6)
  1. EXFORGE [Suspect]
     Indication: HYPERTENSION
     Dosage: 160/5 MG
     Dates: start: 20060101
  2. EXFORGE [Suspect]
     Dosage: 320/5 MG
  3. EXFORGE [Suspect]
     Dosage: 160/5 MG IN THE EVENING'S
  4. HYDROCHLOROTHIAZIDE [Concomitant]
     Dosage: 0.5 MG TABLET DAILY
     Dates: start: 20080501
  5. NIMODIPINE [Concomitant]
  6. VOICOG [Concomitant]

REACTIONS (8)
  - BACK DISORDER [None]
  - BLOOD PRESSURE INADEQUATELY CONTROLLED [None]
  - CARDIOMEGALY [None]
  - EXTRASYSTOLES [None]
  - FLUID RETENTION [None]
  - POOR PERIPHERAL CIRCULATION [None]
  - TACHYCARDIA [None]
  - WOUND DRAINAGE [None]
